FAERS Safety Report 9383628 (Version 1)
Quarter: 2013Q3

REPORT INFORMATION
  Report Type: Spontaneous
  Country: US (occurrence: US)
  Receive Date: 20130704
  Receipt Date: 20130704
  Transmission Date: 20140515
  Serious: Yes (Other)
  Sender: FDA-Public Use
  Company Number: US-PFIZER INC-2013196745

PATIENT
  Sex: Female

DRUGS (4)
  1. LYRICA [Suspect]
     Indication: PAIN
     Dosage: UNK
  2. OXYCODONE HYDROCHLORIDE [Suspect]
     Indication: PAIN
     Dosage: UNK
  3. TRAMADOL HCL [Suspect]
     Indication: PAIN
     Dosage: UNK
  4. CYMBALTA [Suspect]
     Indication: PAIN
     Dosage: UNK

REACTIONS (3)
  - Overdose [Unknown]
  - Drug dependence [Unknown]
  - Drug ineffective [Unknown]
